FAERS Safety Report 8873879 (Version 1)
Quarter: 2012Q4

REPORT INFORMATION
  Report Type: 
  Country: US (occurrence: US)
  Receive Date: 20121023
  Receipt Date: 20121023
  Transmission Date: 20130627
  Serious: Yes (Other)
  Sender: FDA-Public Use
  Company Number: US-FRI-1000039528

PATIENT
  Sex: Male

DRUGS (2)
  1. CELEXA [Suspect]
     Route: 064
  2. PROZAC [Suspect]
     Route: 064

REACTIONS (5)
  - Otitis media chronic [Not Recovered/Not Resolved]
  - Adenoiditis [Not Recovered/Not Resolved]
  - Chronic sinusitis [Not Recovered/Not Resolved]
  - Atrial septal defect [Not Recovered/Not Resolved]
  - Interruption of aortic arch [Not Recovered/Not Resolved]
